FAERS Safety Report 4496569-1 (Version None)
Quarter: 2004Q4

REPORT INFORMATION
  Report Type: 
  Country: None (occurrence: None)
  Receive Date: 20041102
  Receipt Date: 20041018
  Transmission Date: 20050328
  Serious: Yes (Life-Threatening, Hospitalization)
  Sender: FDA-Public Use
  Company Number: B0349283A

PATIENT
  Age: 57 Year
  Sex: Female

DRUGS (2)
  1. COREG [Suspect]
     Indication: HYPERTENSION
     Dosage: 10 MG/ PER DAY/ ORAL
     Route: 048
     Dates: start: 20040720, end: 20040818
  2. LEVOFLOXACIN [Suspect]
     Indication: PYREXIA
     Dosage: 100 MG / PER DAY/ ORAL
     Route: 048
     Dates: start: 20040810, end: 20040815

REACTIONS (3)
  - HEPATIC FUNCTION ABNORMAL [None]
  - PYREXIA [None]
  - STEVENS-JOHNSON SYNDROME [None]
